FAERS Safety Report 14531633 (Version 2)
Quarter: 2018Q3

REPORT INFORMATION
  Report Type: Spontaneous
  Country: FR (occurrence: FR)
  Receive Date: 20180214
  Receipt Date: 20180713
  Transmission Date: 20181010
  Serious: Yes (Hospitalization)
  Sender: FDA-Public Use
  Company Number: FR-MYLANLABS-2018M1008471

PATIENT
  Age: 76 Year
  Sex: Female
  Weight: 53.6 kg

DRUGS (9)
  1. METHOTREXATE. [Suspect]
     Active Substance: METHOTREXATE
     Indication: RHEUMATOID ARTHRITIS
     Dosage: 20 MG, UNK
     Route: 048
  2. CEFTRIAXONE PANPHARMA [Suspect]
     Active Substance: CEFTRIAXONE
     Indication: PULMONARY SEPSIS
     Dosage: 1 G, UNK
     Route: 042
  3. CORTANCYL [Concomitant]
     Active Substance: PREDNISONE
     Indication: INFECTION
     Dosage: 7.5 MG, UNK
     Route: 048
  4. CALCIPARINE [Concomitant]
     Active Substance: HEPARIN CALCIUM
     Indication: PRODUCT USED FOR UNKNOWN INDICATION
     Dosage: 10000 IU, UNK
     Route: 058
  5. OROZAMUDOL 50 MG, COMPRIM? ORODISPERSIBLE [Suspect]
     Active Substance: TRAMADOL
     Indication: PAIN
     Dosage: 50 MG, UNK
     Route: 048
  6. CIPROFLOXACINE KABI [Suspect]
     Active Substance: CIPROFLOXACIN
     Indication: PULMONARY SEPSIS
     Dosage: 200 MG, UNK
     Route: 042
  7. PRIMPERAN [Suspect]
     Active Substance: METOCLOPRAMIDE HYDROCHLORIDE
     Indication: NAUSEA
     Dosage: 10 MG, UNK
     Route: 048
  8. PIPERACILLINE [Concomitant]
     Active Substance: PIPERACILLIN SODIUM
     Indication: PULMONARY SEPSIS
     Dosage: 16 G, UNK
     Route: 042
  9. ROVAMYCINE                         /00074401/ [Suspect]
     Active Substance: SPIRAMYCIN
     Indication: PULMONARY SEPSIS
     Dosage: 1.5 MILLION IU, UNK
     Route: 042

REACTIONS (1)
  - Posterior reversible encephalopathy syndrome [Recovered/Resolved]

NARRATIVE: CASE EVENT DATE: 20180107
